FAERS Safety Report 5657659-0 (Version None)
Quarter: 2008Q1

REPORT INFORMATION
  Report Type: 
  Country: None (occurrence: None)
  Receive Date: 20080310
  Receipt Date: 20080229
  Transmission Date: 20080703
  Serious: Yes (Hospitalization, Disabling)
  Sender: FDA-Public Use
  Company Number: PHNR2007AU01915

PATIENT
  Sex: Female

DRUGS (12)
  1. HMG COA REDUCTASE INHIBITORS [Suspect]
  2. LETROZOLE [Suspect]
     Indication: BREAST CANCER
     Dosage: 2.5 MG DAILY
     Route: 048
     Dates: start: 20070502, end: 20070824
  3. DIGOXIN [Concomitant]
     Dosage: 2.5 UG, QD
  4. CLOPIDOGREL [Concomitant]
     Dosage: 75 MG, QD
  5. DILTIAZEM [Concomitant]
     Dosage: 180 MG, QD
  6. OXYCONTIN [Concomitant]
     Dosage: 10 MG, BID
  7. DOMPERIDONE [Concomitant]
     Dosage: 10 MG H/S
  8. PANTOPRAZOLE [Concomitant]
     Dosage: 40 MG, BID
  9. MIRTAZAPINE [Concomitant]
     Dosage: 30 MG, QD
  10. FRUSEMIDE [Concomitant]
     Dosage: 20 MG, QD
  11. ALPRAZOLAM [Concomitant]
     Dosage: 0.5 MG, BID
  12. COLOXYL WITH SENNA [Concomitant]
     Dosage: STAT

REACTIONS (4)
  - ASTHENIA [None]
  - BLOOD CREATINE PHOSPHOKINASE INCREASED [None]
  - FATIGUE [None]
  - MYOPATHY [None]
